FAERS Safety Report 7949723-8 (Version None)
Quarter: 2011Q4

REPORT INFORMATION
  Report Type: 
  Country: None (occurrence: None)
  Receive Date: 20111130
  Receipt Date: 20111117
  Transmission Date: 20120403
  Serious: Yes (Other)
  Sender: FDA-Public Use
  Company Number: PHHY2011FR95963

PATIENT
  Age: 52 Year
  Sex: Male

DRUGS (6)
  1. SANDOSTATIN LAR [Suspect]
     Indication: METASTASES TO LIVER
     Dosage: 30 MG, QMO
     Route: 030
  2. ALPRAZOLAM [Concomitant]
     Indication: DEPRESSION
  3. ZOLMITRIPTAN [Concomitant]
     Indication: DEPRESSION
  4. MORPHINE [Concomitant]
     Indication: PAIN
  5. CELECOXIB [Concomitant]
     Indication: PAIN
  6. VENLAFAXINE [Concomitant]
     Indication: DEPRESSION

REACTIONS (3)
  - SKIN LESION [None]
  - MELANOCYTIC NAEVUS [None]
  - LYMPHOCYTIC INFILTRATION [None]
